FAERS Safety Report 5743783-0 (Version None)
Quarter: 2008Q2

REPORT INFORMATION
  Report Type: 
  Country: None (occurrence: None)
  Receive Date: 20080520
  Receipt Date: 20080513
  Transmission Date: 20081010
  Serious: Yes (Life-Threatening, Hospitalization)
  Sender: FDA-Public Use
  Company Number: ES-BAYER-200818234GPV

PATIENT
  Sex: Male
  Weight: 69 kg

DRUGS (9)
  1. SORAFENIB OR PLACEBO [Suspect]
     Indication: NON-SMALL CELL LUNG CANCER
     Route: 048
     Dates: start: 20080509, end: 20080512
  2. CISPLATIN [Suspect]
     Indication: NON-SMALL CELL LUNG CANCER
     Route: 042
     Dates: start: 20080509, end: 20080509
  3. GEMCITABINE [Suspect]
     Indication: NON-SMALL CELL LUNG CANCER
     Route: 042
     Dates: start: 20080509, end: 20080509
  4. GEMCITABINE [Suspect]
     Route: 042
     Dates: start: 20080509, end: 20080509
  5. PLUSVENT [Concomitant]
     Indication: PROPHYLAXIS AGAINST BRONCHOSPASM
     Route: 055
     Dates: start: 20080416
  6. COMBIVENT [Concomitant]
     Indication: PROPHYLAXIS AGAINST BRONCHOSPASM
     Route: 055
     Dates: start: 20080416, end: 20080512
  7. SUTRIL [Concomitant]
     Indication: DIURETIC THERAPY
     Route: 048
     Dates: start: 20080416
  8. ESPIRONOLACTONA [Concomitant]
     Indication: DIURETIC THERAPY
     Route: 048
  9. SPIRIVA [Concomitant]
     Indication: PROPHYLAXIS AGAINST BRONCHOSPASM
     Route: 055

REACTIONS (1)
  - PULMONARY EMBOLISM [None]
